FAERS Safety Report 5361782-8 (Version None)
Quarter: 2007Q2

REPORT INFORMATION
  Report Type: 
  Country: None (occurrence: None)
  Receive Date: 20070530
  Receipt Date: 20070108
  Transmission Date: 20071010
  Serious: No
  Sender: FDA-Public Use
  Company Number: 2006PV027291

PATIENT
  Age: 49 Year
  Sex: Female
  Weight: 81.6475 kg

DRUGS (10)
  1. BYETTA [Suspect]
     Indication: DIABETES MELLITUS NON-INSULIN-DEPENDENT
     Dosage: 10 MCG;BID;SC,5 MCG;BID;SC,10 MCG;BID;SC,5 MCG;BID;SC
     Route: 058
     Dates: start: 20060901, end: 20061001
  2. BYETTA [Suspect]
     Indication: DIABETES MELLITUS NON-INSULIN-DEPENDENT
     Dosage: 10 MCG;BID;SC,5 MCG;BID;SC,10 MCG;BID;SC,5 MCG;BID;SC
     Route: 058
     Dates: start: 20061001, end: 20061101
  3. BYETTA [Suspect]
     Indication: DIABETES MELLITUS NON-INSULIN-DEPENDENT
     Dosage: 10 MCG;BID;SC,5 MCG;BID;SC,10 MCG;BID;SC,5 MCG;BID;SC
     Route: 058
     Dates: start: 20061001
  4. BYETTA [Suspect]
     Indication: DIABETES MELLITUS NON-INSULIN-DEPENDENT
     Dosage: 10 MCG;BID;SC,5 MCG;BID;SC,10 MCG;BID;SC,5 MCG;BID;SC
     Route: 058
     Dates: start: 20061101
  5. GLUCOPHAGE [Concomitant]
  6. METFORMIN HCL [Concomitant]
  7. GLUCOVANCE [Concomitant]
  8. ALTACE [Concomitant]
  9. AMITRIPTYLINE HCL [Concomitant]
  10. WELLBUTRIN [Concomitant]

REACTIONS (5)
  - BLOOD GLUCOSE DECREASED [None]
  - BLOOD GLUCOSE INCREASED [None]
  - DECREASED APPETITE [None]
  - DRUG EFFECT DECREASED [None]
  - MUSCLE SPASMS [None]
